FAERS Safety Report 10706573 (Version 1)
Quarter: 2015Q1

REPORT INFORMATION
  Report Type: Spontaneous
  Country: US (occurrence: None)
  Receive Date: 20150109
  Receipt Date: 20150109
  Transmission Date: 20150721
  Serious: Yes (Hospitalization)
  Sender: FDA-Public Use
  Company Number: US2015000646

PATIENT
  Age: 87 Year
  Sex: Female

DRUGS (2)
  1. CITRUCEL [Suspect]
     Active Substance: METHYLCELLULOSE (4000 MPA.S)
     Route: 048
     Dates: start: 20141225, end: 20141225
  2. UNKNOWN (MEDICATION UNKNOWN) [Concomitant]

REACTIONS (2)
  - Vomiting [None]
  - Abdominal pain upper [None]
